FAERS Safety Report 6469120-4 (Version None)
Quarter: 2009Q4

REPORT INFORMATION
  Report Type: 
  Country: None (occurrence: None)
  Receive Date: 20091203
  Receipt Date: 20090512
  Transmission Date: 20100525
  Serious: Yes (Death, Hospitalization)
  Sender: FDA-Public Use
  Company Number: MX-ELI_LILLY_AND_COMPANY-MX200709003417

PATIENT
  Sex: Female

DRUGS (9)
  1. GEMCITABINE HCL [Suspect]
     Indication: BREAST CANCER METASTATIC
     Dosage: 1000 MG/M2, OTHER
     Route: 042
     Dates: start: 20070828
  2. VINFLUNINE [Suspect]
     Indication: BREAST CANCER METASTATIC
     Dosage: 320 MG/M2, OTHER
     Route: 042
     Dates: start: 20070828
  3. LACTULOSE [Concomitant]
     Dosage: UNK, UNKNOWN
     Route: 065
  4. METFORMIN HCL [Concomitant]
     Dosage: UNK, UNKNOWN
     Route: 065
  5. CAPTOPRIL [Concomitant]
     Dosage: UNK, UNKNOWN
     Route: 065
  6. ZESTORETIC [Concomitant]
     Dosage: UNK, UNKNOWN
     Route: 066
     Dates: start: 19900101
  7. IBERET [Concomitant]
     Dosage: UNK, UNKNOWN
     Route: 065
     Dates: start: 20070514, end: 20070908
  8. LEVOTHYROXINE SODIUM [Concomitant]
     Dosage: UNK, UNKNOWN
     Route: 065
  9. CHLORPROPAMIDE [Concomitant]
     Dosage: UNK, UNKNOWN
     Route: 065

REACTIONS (10)
  - DEHYDRATION [None]
  - FATIGUE [None]
  - LEUKOPENIA [None]
  - LUNG INFECTION [None]
  - MUCOSAL INFLAMMATION [None]
  - OBESITY [None]
  - PANCYTOPENIA [None]
  - PETECHIAE [None]
  - RESPIRATORY FAILURE [None]
  - THROMBOCYTOPENIA [None]
